FAERS Safety Report 19574566 (Version 1)
Quarter: 2021Q3

REPORT INFORMATION
  Report Type: Spontaneous
  Country: IL (occurrence: IL)
  Receive Date: 20210719
  Receipt Date: 20210719
  Transmission Date: 20211014
  Serious: Yes (Other)
  Sender: FDA-Public Use
  Company Number: IL-NOVOPROD-829380

PATIENT
  Age: 36 Year
  Sex: Female

DRUGS (2)
  1. SAXENDA [Suspect]
     Active Substance: LIRAGLUTIDE
     Dosage: 1.2 MG, QD
     Route: 058
     Dates: end: 20210704
  2. SAXENDA [Suspect]
     Active Substance: LIRAGLUTIDE
     Indication: OVERWEIGHT
     Dosage: 0.6 MG, QD (MORE THAN A WEEK)
     Route: 058
     Dates: start: 202105

REACTIONS (6)
  - Increased appetite [Unknown]
  - Asthenia [Unknown]
  - Pain in extremity [Unknown]
  - Fall [Unknown]
  - Malaise [Unknown]
  - Therapeutic product effect decreased [Unknown]
